FAERS Safety Report 7422752-9 (Version None)
Quarter: 2011Q2

REPORT INFORMATION
  Report Type: 
  Country: None (occurrence: None)
  Receive Date: 20110414
  Receipt Date: 20110414
  Transmission Date: 20111010
  Serious: Yes (Disabling)
  Sender: FDA-Public Use
  Company Number: None

PATIENT
  Sex: Male
  Weight: 79.3795 kg

DRUGS (1)
  1. AVELOX [Suspect]
     Indication: COUGH
     Dosage: 400MG 1/DAY PILL
     Dates: start: 20101220, end: 20101227

REACTIONS (8)
  - URTICARIA [None]
  - HAEMATOCHEZIA [None]
  - MUSCULOSKELETAL PAIN [None]
  - PRURITUS [None]
  - FLUSHING [None]
  - TENDON PAIN [None]
  - RASH [None]
  - ABDOMINAL PAIN UPPER [None]
